FAERS Safety Report 12230862 (Version 1)
Quarter: 2016Q2

REPORT INFORMATION
  Report Type: Spontaneous
  Country: GB (occurrence: GB)
  Receive Date: 20160401
  Receipt Date: 20160401
  Transmission Date: 20160815
  Serious: Yes (Hospitalization)
  Sender: FDA-Public Use
  Company Number: GB-TEVA-647221ACC

PATIENT
  Age: 71 Year
  Sex: Female
  Weight: 66.7 kg

DRUGS (8)
  1. WARFARIN [Suspect]
     Active Substance: WARFARIN
  2. VENTOLIN [Concomitant]
     Active Substance: ALBUTEROL SULFATE
  3. BISOPROLOL [Concomitant]
     Active Substance: BISOPROLOL
  4. BENDROFLUMETHIAZIDE [Concomitant]
     Active Substance: BENDROFLUMETHIAZIDE
  5. CALCICHEW D3 [Concomitant]
     Active Substance: CALCIUM\CHOLECALCIFEROL
  6. DENOSUMAB [Concomitant]
     Active Substance: DENOSUMAB
  7. COLCHICINE. [Interacting]
     Active Substance: COLCHICINE
     Indication: GOUT
     Dosage: 2000 MICROGRAM DAILY;
     Route: 048
     Dates: start: 20160201, end: 20160225
  8. ATROVENT [Concomitant]
     Active Substance: IPRATROPIUM BROMIDE

REACTIONS (5)
  - Diarrhoea [Recovering/Resolving]
  - Acute kidney injury [Recovering/Resolving]
  - Drug interaction [Unknown]
  - International normalised ratio increased [Recovering/Resolving]
  - Hypocalcaemia [Recovering/Resolving]

NARRATIVE: CASE EVENT DATE: 20160201
